FAERS Safety Report 4793698-X (Version None)
Quarter: 2005Q4

REPORT INFORMATION
  Report Type: 
  Country: None (occurrence: None)
  Receive Date: 20051011
  Receipt Date: 20051004
  Transmission Date: 20060501
  Serious: Yes (Other)
  Sender: FDA-Public Use
  Company Number: US-JNJFOC-20050606196

PATIENT
  Sex: Female
  Weight: 68.04 kg

DRUGS (5)
  1. DURAGESIC-100 [Suspect]
     Route: 062
     Dates: start: 20020101
  2. DURAGESIC-100 [Suspect]
     Route: 062
     Dates: start: 20020101
  3. DURAGESIC-100 [Suspect]
     Route: 062
     Dates: start: 20020101
  4. DURAGESIC-100 [Suspect]
     Route: 062
     Dates: start: 20020101
  5. DURAGESIC-100 [Suspect]
     Route: 062
     Dates: start: 20020101

REACTIONS (3)
  - COMPLEX REGIONAL PAIN SYNDROME [None]
  - FALL [None]
  - HUMERUS FRACTURE [None]
